FAERS Safety Report 6893253-1 (Version None)
Quarter: 2010Q3

REPORT INFORMATION
  Report Type: 
  Country: None (occurrence: None)
  Receive Date: 20100731
  Receipt Date: 20090720
  Transmission Date: 20110219
  Serious: Yes (Other)
  Sender: FDA-Public Use
  Company Number: US-PFIZER INC-2009218840

PATIENT
  Sex: Male
  Weight: 79.365 kg

DRUGS (5)
  1. GABAPENTIN [Suspect]
     Indication: NEUROPATHY PERIPHERAL
     Dosage: 800 MG, 3X/DAY
     Dates: start: 20090301
  2. SERTRALINE [Concomitant]
     Dosage: UNK
  3. CHONDROITIN/GLUCOSAMINE [Concomitant]
  4. VITAMIN B-12 [Concomitant]
     Indication: VITAMIN B12 DEFICIENCY
     Dosage: UNK
  5. ACETYLSALICYLIC ACID [Concomitant]
     Dosage: UNK

REACTIONS (5)
  - ANAEMIA [None]
  - ARTHROPATHY [None]
  - CONSTIPATION [None]
  - DRUG INEFFECTIVE [None]
  - PAIN [None]
